FAERS Safety Report 24050605 (Version 1)
Quarter: 2024Q3

REPORT INFORMATION
  Report Type: Spontaneous
  Country: US (occurrence: US)
  Receive Date: 20240704
  Receipt Date: 20240704
  Transmission Date: 20241017
  Serious: Yes (Other)
  Sender: AMGEN
  Company Number: US-AMGEN-USASP2024129728

PATIENT
  Age: 44 Year
  Sex: Male

DRUGS (8)
  1. PREDNISONE [Suspect]
     Active Substance: PREDNISONE
     Indication: Erdheim-Chester disease
     Dosage: 60 MILLIGRAM, QD
     Route: 065
  2. AMOXICILLIN [Concomitant]
     Active Substance: AMOXICILLIN
  3. FERROUS SULFATE [Concomitant]
     Active Substance: FERROUS SULFATE
     Dosage: 324 MILLIGRAM, QD
  4. FLOVENT HFA [Concomitant]
     Active Substance: FLUTICASONE PROPIONATE
     Dosage: 220 MICROGRAM, BID//ACTUATION INHALER
  5. ALBUTEROL [Concomitant]
     Active Substance: ALBUTEROL
     Dosage: 90 MICROGRAM//ACTUATION INHALER AS NEEDED
  6. LORATADINE [Concomitant]
     Active Substance: LORATADINE
     Dosage: 10 MILLIGRAM AS NEEDED
  7. PANTOPRAZOLE [Concomitant]
     Active Substance: PANTOPRAZOLE
     Dosage: 40 MILLIGRAM, QD
  8. METHYLPREDNISOLONE [Concomitant]
     Active Substance: METHYLPREDNISOLONE
     Dosage: 1 GRAM, QD (FOR 3 DAYS)

REACTIONS (15)
  - Urosepsis [Unknown]
  - Hydronephrosis [Unknown]
  - Oedema peripheral [Recovered/Resolved]
  - Drug effective for unapproved indication [Unknown]
  - Headache [Unknown]
  - Fatigue [Unknown]
  - Asthenia [Unknown]
  - Hypoaesthesia [Unknown]
  - Paraesthesia [Unknown]
  - Vertebral column mass [Unknown]
  - Renal mass [Unknown]
  - C-reactive protein increased [Unknown]
  - Red blood cell sedimentation rate increased [Unknown]
  - Blood prolactin increased [Unknown]
  - Off label use [Unknown]
